FAERS Safety Report 8451014-6 (Version None)
Quarter: 2012Q2

REPORT INFORMATION
  Report Type: 
  Country: None (occurrence: None)
  Receive Date: 20120620
  Receipt Date: 20120613
  Transmission Date: 20120825
  Serious: Yes (Disabling, Other)
  Sender: FDA-Public Use
  Company Number: DE-ROCHE-1068700

PATIENT
  Sex: Female
  Weight: 50 kg

DRUGS (1)
  1. BONIVA [Suspect]
     Indication: OSTEOPOROSIS
     Route: 042
     Dates: start: 20110405, end: 20120319

REACTIONS (5)
  - PNEUMONIA [None]
  - T-CELL LYMPHOMA [None]
  - DEPRESSION [None]
  - WEIGHT DECREASED [None]
  - PANCREATITIS [None]
